FAERS Safety Report 10788126 (Version 1)
Quarter: 2015Q1

REPORT INFORMATION
  Report Type: Spontaneous
  Country: CH (occurrence: CH)
  Receive Date: 20150212
  Receipt Date: 20150212
  Transmission Date: 20150721
  Serious: Yes (Hospitalization)
  Sender: FDA-Public Use
  Company Number: CH-ELI_LILLY_AND_COMPANY-CH201502002420

PATIENT
  Age: 46 Year
  Sex: Male

DRUGS (7)
  1. EFIENT [Suspect]
     Active Substance: PRASUGREL HYDROCHLORIDE
     Indication: PRODUCT USED FOR UNKNOWN INDICATION
     Dosage: 1 DF, QD
     Route: 048
     Dates: end: 20150105
  2. CONCOR [Concomitant]
     Active Substance: BISOPROLOL FUMARATE
     Dosage: 5 MG, QD
  3. ASPIRIN CARDIO [Suspect]
     Active Substance: ASPIRIN
     Indication: PRODUCT USED FOR UNKNOWN INDICATION
     Dosage: 1 DF, QD
     Route: 048
     Dates: end: 20150105
  4. ENOXAPARIN SODIUM. [Suspect]
     Active Substance: ENOXAPARIN SODIUM
     Indication: PRODUCT USED FOR UNKNOWN INDICATION
     Dosage: .8 ML, BID
     Route: 058
     Dates: start: 201501, end: 201501
  5. TRIATEC                            /00116401/ [Concomitant]
     Active Substance: HYDROCHLOROTHIAZIDE
     Dosage: 1 DF, QD
  6. SORTIS [Concomitant]
     Active Substance: ATORVASTATIN
     Dosage: 40 MG, QD
  7. EZETIMIBE. [Concomitant]
     Active Substance: EZETIMIBE
     Dosage: UNK

REACTIONS (2)
  - Cerebral haemorrhage [Recovering/Resolving]
  - Myocardial infarction [Unknown]

NARRATIVE: CASE EVENT DATE: 20150101
